FAERS Safety Report 16682227 (Version 1)
Quarter: 2019Q3

REPORT INFORMATION
  Report Type: Spontaneous
  Country: GB (occurrence: GB)
  Receive Date: 20190808
  Receipt Date: 20190808
  Transmission Date: 20191004
  Serious: Yes (Hospitalization)
  Sender: FDA-Public Use
  Company Number: GB-TEVA-2019-GB-1089297

PATIENT
  Age: 78 Year
  Sex: Female
  Weight: 79.8 kg

DRUGS (14)
  1. AZITHROMYCIN ANHYDROUS. [Suspect]
     Active Substance: AZITHROMYCIN ANHYDROUS
     Indication: MYCOBACTERIAL DISEASE CARRIER
     Dosage: 250 MG
     Route: 048
     Dates: start: 20190531, end: 20190627
  2. ENOXAPARIN [Concomitant]
     Active Substance: ENOXAPARIN
  3. RIFAMPICIN [Concomitant]
     Active Substance: RIFAMPIN
     Indication: MYCOBACTERIAL INFECTION
     Dosage: STOPPED LAST WEEK
  4. PARACETAMOL [Concomitant]
     Active Substance: ACETAMINOPHEN
  5. ADCAL-D3 [Concomitant]
     Active Substance: CALCIUM CARBONATE\CHOLECALCIFEROL
  6. SERETIDE [Concomitant]
     Active Substance: FLUTICASONE PROPIONATE\SALMETEROL XINAFOATE
  7. MEROPENEM. [Concomitant]
     Active Substance: MEROPENEM
  8. SALBUTAMOL [Concomitant]
     Active Substance: ALBUTEROL
  9. FEXOFENADINE [Concomitant]
     Active Substance: FEXOFENADINE HYDROCHLORIDE
  10. ETHAMBUTOL [Concomitant]
     Active Substance: ETHAMBUTOL HYDROCHLORIDE
     Indication: MYCOBACTERIAL INFECTION
     Dosage: STOPPED LAST WEEK
  11. OILATUM [Concomitant]
  12. AMITRIPTYLINE [Concomitant]
     Active Substance: AMITRIPTYLINE
  13. CETRABEN EMOLLIENT CREAM [Concomitant]
  14. BETNOVATE [Concomitant]
     Active Substance: BETAMETHASONE

REACTIONS (9)
  - Night sweats [Unknown]
  - Delirium [Unknown]
  - Skin abrasion [Unknown]
  - Pyrexia [Unknown]
  - Malaise [Unknown]
  - Confusional state [Unknown]
  - Febrile neutropenia [Not Recovered/Not Resolved]
  - Cough [Unknown]
  - Urticaria [Not Recovered/Not Resolved]

NARRATIVE: CASE EVENT DATE: 20190626
